FAERS Safety Report 9271035 (Version 7)
Quarter: 2014Q1

REPORT INFORMATION
  Report Type: Spontaneous
  Country: US (occurrence: US)
  Receive Date: 20130506
  Receipt Date: 20140204
  Transmission Date: 20141002
  Serious: Yes (Other)
  Sender: FDA-Public Use
  Company Number: US-JNJFOC-20130417706

PATIENT
  Age: 19 Year
  Sex: Female

DRUGS (12)
  1. TOPAMAX [Suspect]
     Indication: BIPOLAR DISORDER
     Route: 048
  2. TOPAMAX [Suspect]
     Indication: BIPOLAR DISORDER
     Route: 048
     Dates: start: 200206, end: 200207
  3. RISPERDAL [Suspect]
     Indication: BIPOLAR DISORDER
     Route: 065
  4. TRAZODONE [Suspect]
     Indication: DEPRESSION
     Route: 065
  5. TRAZODONE [Suspect]
     Indication: BIPOLAR DISORDER
     Route: 065
  6. CHLORPROMAZINE [Suspect]
     Indication: PRODUCT USED FOR UNKNOWN INDICATION
     Route: 065
  7. PROMETHAZINE [Suspect]
     Indication: NAUSEA
     Route: 065
  8. NIFEDIPINE [Suspect]
     Indication: PRE-ECLAMPSIA
     Route: 065
  9. NIFEDIPINE [Suspect]
     Indication: HYPERTENSION
     Route: 065
  10. FE-TINIC [Concomitant]
     Indication: PRODUCT USED FOR UNKNOWN INDICATION
     Route: 065
  11. PREMESISRX [Concomitant]
     Indication: NAUSEA
     Route: 065
  12. PREMESISRX [Concomitant]
     Indication: PREGNANCY
     Route: 065

REACTIONS (4)
  - Premature delivery [Recovered/Resolved]
  - Exposure during pregnancy [Recovered/Resolved]
  - Pre-eclampsia [Unknown]
  - Emotional disorder [Unknown]
